FAERS Safety Report 4541946-3 (Version None)
Quarter: 2004Q4

REPORT INFORMATION
  Report Type: 
  Country: None (occurrence: None)
  Receive Date: 20041227
  Receipt Date: 20041209
  Transmission Date: 20050328
  Serious: Yes (Other)
  Sender: FDA-Public Use
  Company Number: 211181

PATIENT
  Age: 28 Year
  Sex: Female

DRUGS (2)
  1. MABTHERA (RITUXIMAB)            CONC FOR SOLUTION FOR INFUSION [Suspect]
     Indication: SYSTEMIC LUPUS ERYTHEMATOSUS
     Dosage: 375 MG, 1/WEEK
     Route: 042
  2. PREDNISONE [Concomitant]

REACTIONS (2)
  - PULMONARY EMBOLISM [None]
  - SERUM SICKNESS [None]
